FAERS Safety Report 6880899-X (Version None)
Quarter: 2010Q3

REPORT INFORMATION
  Report Type: 
  Country: None (occurrence: None)
  Receive Date: 20100728
  Receipt Date: 20100721
  Transmission Date: 20110219
  Serious: Yes (Hospitalization, Other)
  Sender: FDA-Public Use
  Company Number: US-ABBOTT-10P-163-0659279-00

PATIENT
  Sex: Male
  Weight: 104.42 kg

DRUGS (2)
  1. HUMIRA [Suspect]
     Indication: RHEUMATOID ARTHRITIS
     Route: 058
     Dates: start: 20050101, end: 20060701
  2. HUMIRA [Suspect]
     Indication: OSTEOARTHRITIS

REACTIONS (11)
  - ARRHYTHMIA [None]
  - DEEP VEIN THROMBOSIS [None]
  - DIARRHOEA [None]
  - DYSPNOEA [None]
  - HAEMORRHAGE [None]
  - HISTOPLASMOSIS [None]
  - JOINT SWELLING [None]
  - LOSS OF CONSCIOUSNESS [None]
  - PULMONARY EMBOLISM [None]
  - PYREXIA [None]
  - SCAN ADRENAL GLAND ABNORMAL [None]
